APPROVED DRUG PRODUCT: METFORMIN HYDROCHLORIDE
Active Ingredient: METFORMIN HYDROCHLORIDE
Strength: 1GM
Dosage Form/Route: TABLET;ORAL
Application: A077095 | Product #003 | TE Code: AB
Applicant: AUROBINDO PHARMA LTD
Approved: Jan 14, 2005 | RLD: No | RS: No | Type: RX